FAERS Safety Report 18288818 (Version 1)
Quarter: 2020Q3

REPORT INFORMATION
  Report Type: Spontaneous
  Country: DE (occurrence: DE)
  Receive Date: 20200921
  Receipt Date: 20200921
  Transmission Date: 20201103
  Serious: Yes (Other)
  Sender: FDA-Public Use
  Company Number: DE-SUN PHARMACEUTICAL INDUSTRIES LTD-2020RR-258552

PATIENT
  Age: 33 Year
  Sex: Female

DRUGS (4)
  1. ILUMETRI 100 MG, INJEKTIONSL?SUNG [Suspect]
     Active Substance: TILDRAKIZUMAB
     Indication: PSORIASIS
     Dosage: TOTAL OF 3 INJECTIONS SO FAR
     Route: 065
     Dates: start: 202006
  2. ILUMETRI 100 MG, INJEKTIONSL?SUNG [Suspect]
     Active Substance: TILDRAKIZUMAB
     Dosage: ON THE ABDOMEN 100 MG
     Route: 065
     Dates: start: 20200512
  3. ILUMETRI 100 MG, INJEKTIONSL?SUNG [Suspect]
     Active Substance: TILDRAKIZUMAB
     Dosage: ON THE ABDOMEN 100 MG
     Route: 065
     Dates: start: 20200128
  4. ILUMETRI 100 MG, INJEKTIONSL?SUNG [Suspect]
     Active Substance: TILDRAKIZUMAB
     Dosage: ON THE ABDOMEN 100 MG
     Route: 065
     Dates: start: 20200714, end: 20200811

REACTIONS (2)
  - Maternal exposure during pregnancy [Unknown]
  - Abortion spontaneous [Unknown]
